FAERS Safety Report 15429506 (Version 1)
Quarter: 2018Q3

REPORT INFORMATION
  Report Type: Report from Study
  Country: None (occurrence: CO)
  Receive Date: 20180926
  Receipt Date: 20180926
  Transmission Date: 20181010
  Serious: Yes (Hospitalization, Other)
  Sender: FDA-Public Use
  Company Number: CO-ABBVIE-18S-036-2498608-00

PATIENT
  Age: 54 Year
  Sex: Female
  Weight: 81 kg

DRUGS (1)
  1. ZEMPLAR [Suspect]
     Active Substance: PARICALCITOL
     Indication: HYPERPARATHYROIDISM SECONDARY
     Dosage: POST DIALYSIS
     Route: 042
     Dates: start: 20150130, end: 20180829

REACTIONS (1)
  - Device damage [Recovering/Resolving]

NARRATIVE: CASE EVENT DATE: 20180918
